FAERS Safety Report 18984058 (Version 2)
Quarter: 2021Q2

REPORT INFORMATION
  Report Type: Report from Study
  Country: None (occurrence: US)
  Receive Date: 20210309
  Receipt Date: 20210607
  Transmission Date: 20210717
  Serious: Yes (Other)
  Sender: FDA-Public Use
  Company Number: US-ABBVIE-20K-163-3575793-00

PATIENT
  Sex: Female

DRUGS (5)
  1. MELOXICAM. [Suspect]
     Active Substance: MELOXICAM
     Indication: PRODUCT USED FOR UNKNOWN INDICATION
     Route: 065
  2. HUMIRA [Suspect]
     Active Substance: ADALIMUMAB
     Indication: PSORIATIC ARTHROPATHY
     Route: 058
     Dates: start: 20200901
  3. OTEZLA [Suspect]
     Active Substance: APREMILAST
     Indication: RHEUMATOID ARTHRITIS
     Route: 065
     Dates: start: 2021
  4. COVID?19 VACCINE NOS. [Suspect]
     Active Substance: COVID-19 VACCINE NOS
     Indication: COVID-19 IMMUNISATION
     Route: 030
     Dates: start: 2021, end: 2021
  5. HUMIRA [Suspect]
     Active Substance: ADALIMUMAB
     Indication: PSORIASIS
     Route: 058

REACTIONS (32)
  - Joint swelling [Recovering/Resolving]
  - Loss of personal independence in daily activities [Not Recovered/Not Resolved]
  - Psoriasis [Recovering/Resolving]
  - Ear discomfort [Unknown]
  - Musculoskeletal stiffness [Unknown]
  - Joint stiffness [Recovering/Resolving]
  - Skin exfoliation [Recovering/Resolving]
  - Injection site erythema [Recovered/Resolved]
  - Temporomandibular joint syndrome [Recovering/Resolving]
  - Gait disturbance [Recovered/Resolved]
  - Drug ineffective [Unknown]
  - Deafness unilateral [Unknown]
  - Ear congestion [Not Recovered/Not Resolved]
  - Sinus congestion [Unknown]
  - Injection site pruritus [Recovered/Resolved]
  - Pain [Not Recovered/Not Resolved]
  - Ear pain [Not Recovered/Not Resolved]
  - Discomfort [Not Recovered/Not Resolved]
  - Hypoacusis [Unknown]
  - Upper-airway cough syndrome [Unknown]
  - Nasopharyngitis [Unknown]
  - Arthropathy [Not Recovered/Not Resolved]
  - Asthenia [Unknown]
  - Dermatitis [Unknown]
  - Paranasal sinus discomfort [Unknown]
  - Fatigue [Recovered/Resolved]
  - Grip strength decreased [Not Recovered/Not Resolved]
  - Pain [Recovered/Resolved]
  - Pain in extremity [Not Recovered/Not Resolved]
  - Arthralgia [Recovering/Resolving]
  - Headache [Unknown]
  - Feeling abnormal [Recovered/Resolved]

NARRATIVE: CASE EVENT DATE: 2020
